FAERS Safety Report 5391482-X (Version None)
Quarter: 2007Q3

REPORT INFORMATION
  Report Type: 
  Country: None (occurrence: None)
  Receive Date: 20070719
  Receipt Date: 20070711
  Transmission Date: 20080115
  Serious: Yes (Hospitalization)
  Sender: FDA-Public Use
  Company Number: AU-PURDUE-USA_2007_0028214

PATIENT
  Age: 34 Year
  Sex: Male

DRUGS (6)
  1. OXYCODONE HCL [Suspect]
     Indication: SENSORY DISTURBANCE
     Dosage: 60 MG, DAILY
     Route: 048
     Dates: start: 20060430, end: 20060923
  2. BUPIVACAINE HYDROCHLORIDE [Concomitant]
     Dates: start: 20060426, end: 20060426
  3. CEPHALEXIN [Concomitant]
     Dates: start: 20060426, end: 20060426
  4. PROPOFOL [Concomitant]
  5. FENTANYL [Concomitant]
  6. KETAMINE HYDROCHLORIDE [Concomitant]

REACTIONS (1)
  - HEPATOTOXICITY [None]
